FAERS Safety Report 24991973 (Version 1)
Quarter: 2025Q1

REPORT INFORMATION
  Report Type: Other
  Country: IN (occurrence: IN)
  Receive Date: 20250220
  Receipt Date: 20250220
  Transmission Date: 20250408
  Serious: Yes (Hospitalization, Other)
  Sender: EVEREST LIFE SCIENCES LLC
  Company Number: IN-Everest Life Sciences LLC-2171490

PATIENT
  Age: 20 Year
  Sex: Male

DRUGS (7)
  1. DAPSONE [Suspect]
     Active Substance: DAPSONE
     Indication: Lepromatous leprosy
  2. DAPSONE [Suspect]
     Active Substance: DAPSONE
     Indication: Type 2 lepra reaction
  3. CLOFAZIMINE [Concomitant]
     Active Substance: CLOFAZIMINE
  4. PREDNISOLONE [Concomitant]
     Active Substance: PREDNISOLONE
  5. HYDROCORTISONE ACETATE [Concomitant]
     Active Substance: HYDROCORTISONE ACETATE
  6. THALIDOMIDE [Concomitant]
     Active Substance: THALIDOMIDE
  7. RIFAMPIN [Concomitant]
     Active Substance: RIFAMPIN

REACTIONS (1)
  - Bipolar disorder [Recovering/Resolving]
